FAERS Safety Report 15262080 (Version 6)
Quarter: 2018Q3

REPORT INFORMATION
  Report Type: Spontaneous
  Country: HU (occurrence: HU)
  Receive Date: 20180809
  Receipt Date: 20180904
  Transmission Date: 20181010
  Serious: Yes (Hospitalization)
  Sender: FDA-Public Use
  Company Number: PHHY2018HU066338

PATIENT
  Age: 3 Month
  Sex: Female

DRUGS (11)
  1. CEFTAZIDIME. [Concomitant]
     Active Substance: CEFTAZIDIME
     Indication: OTITIS MEDIA
     Dosage: UNK
     Route: 065
  2. CLAFORAN [Concomitant]
     Active Substance: CEFOTAXIME SODIUM
     Indication: CONJUNCTIVITIS
  3. CIPROFLOXACIN. [Suspect]
     Active Substance: CIPROFLOXACIN
     Indication: OTITIS MEDIA
     Dosage: UNK
     Route: 065
     Dates: start: 2014
  4. STANDACILLIN [Suspect]
     Active Substance: AMPICILLIN
     Indication: CONJUNCTIVITIS
  5. CLAFORAN [Concomitant]
     Active Substance: CEFOTAXIME SODIUM
     Indication: VIRAL INFECTION
     Dosage: UNK
     Route: 065
     Dates: start: 2014
  6. CLAFORAN [Concomitant]
     Active Substance: CEFOTAXIME SODIUM
     Indication: HEPATOMEGALY
  7. STANDACILLIN [Suspect]
     Active Substance: AMPICILLIN
     Indication: VIRAL INFECTION
     Dosage: UNK
     Route: 065
     Dates: start: 2014
  8. TOBRAMYCIN. [Suspect]
     Active Substance: TOBRAMYCIN
     Indication: OTITIS MEDIA
     Dosage: UNK
     Route: 065
     Dates: start: 2014
  9. CLAFORAN [Concomitant]
     Active Substance: CEFOTAXIME SODIUM
     Indication: DEHYDRATION
  10. STANDACILLIN [Suspect]
     Active Substance: AMPICILLIN
     Indication: HEPATOMEGALY
  11. MEROPENEM. [Suspect]
     Active Substance: MEROPENEM
     Indication: OTITIS MEDIA
     Dosage: UNK
     Route: 065
     Dates: start: 2014

REACTIONS (16)
  - Ovarian cyst [Unknown]
  - Faeces discoloured [Unknown]
  - Blood alkaline phosphatase increased [Unknown]
  - Blood bilirubin increased [Unknown]
  - Pseudomonas test positive [Unknown]
  - Underweight [Unknown]
  - Sweat test abnormal [Unknown]
  - Gastroenteritis [Unknown]
  - Diarrhoea [Unknown]
  - Gallbladder disorder [Unknown]
  - Pulmonary fibrosis [Unknown]
  - Dehydration [Recovering/Resolving]
  - Faeces pale [Unknown]
  - Normocytic anaemia [Unknown]
  - Hepatomegaly [Unknown]
  - Cardiac murmur [Unknown]

NARRATIVE: CASE EVENT DATE: 2014
